FAERS Safety Report 8985150 (Version 2)
Quarter: 2013Q1

REPORT INFORMATION
  Report Type: Spontaneous
  Country: US (occurrence: US)
  Receive Date: 20121226
  Receipt Date: 20130304
  Transmission Date: 20140127
  Serious: Yes (Other)
  Sender: FDA-Public Use
  Company Number: US-BAYER-2012-133501

PATIENT
  Age: 38 Year
  Sex: Female
  Weight: 63 kg

DRUGS (1)
  1. MIRENA [Suspect]
     Dosage: 20 MCG/24HR, CONT
     Route: 015
     Dates: start: 20110817, end: 20130108

REACTIONS (6)
  - Post procedural haemorrhage [None]
  - Hypoaesthesia [None]
  - Feeling cold [None]
  - Anxiety [None]
  - Amenorrhoea [None]
  - Insomnia [None]
